FAERS Safety Report 25097194 (Version 3)
Quarter: 2025Q2

REPORT INFORMATION
  Report Type: Report from Study
  Country: GB (occurrence: GB)
  Receive Date: 20250319
  Receipt Date: 20250519
  Transmission Date: 20250717
  Serious: Yes (Other)
  Sender: ABBVIE
  Company Number: GB-ABBVIE-6181617

PATIENT
  Age: 49 Year
  Sex: Female
  Weight: 58 kg

DRUGS (3)
  1. SKYRIZI [Suspect]
     Active Substance: RISANKIZUMAB-RZAA
     Indication: Psoriasis
     Dosage: DOSAGE FROM-SOLUTION FOR INJECTION IN PRE-FILLED PEN?FORM STRENGTH: 150MG/1ML
     Route: 058
     Dates: start: 20240916, end: 20250213
  2. MAGNESIUM [Concomitant]
     Active Substance: MAGNESIUM
     Indication: Product used for unknown indication
     Route: 048
  3. OMEGA 3 [Concomitant]
     Active Substance: CAPSAICIN
     Indication: Product used for unknown indication
     Route: 048

REACTIONS (2)
  - Retinal vein occlusion [Recovering/Resolving]
  - Ophthalmic vascular thrombosis [Recovering/Resolving]

NARRATIVE: CASE EVENT DATE: 20250213
